FAERS Safety Report 13814067 (Version 2)
Quarter: 2017Q4

REPORT INFORMATION
  Report Type: Spontaneous
  Country: US (occurrence: US)
  Receive Date: 20170731
  Receipt Date: 20171018
  Transmission Date: 20180320
  Serious: No
  Sender: FDA-Public Use
  Company Number: US-PFIZER INC-2017326482

PATIENT
  Sex: Male

DRUGS (2)
  1. INDOMETHACIN /00003801/ [Suspect]
     Active Substance: INDOMETHACIN
     Dosage: 50 MG, UNK
  2. PROTONIX [Suspect]
     Active Substance: PANTOPRAZOLE SODIUM
     Dosage: 40 MG, UNK

REACTIONS (12)
  - Pain [Unknown]
  - Musculoskeletal discomfort [Unknown]
  - Tenderness [Unknown]
  - Swelling [Unknown]
  - Carpal tunnel syndrome [Unknown]
  - Arthralgia [Unknown]
  - Fatigue [Unknown]
  - Pain in extremity [Unknown]
  - Condition aggravated [Unknown]
  - Blood pressure abnormal [Unknown]
  - Joint warmth [Unknown]
  - Tinel^s sign [Unknown]
